FAERS Safety Report 7991701-7 (Version None)
Quarter: 2011Q4

REPORT INFORMATION
  Report Type: 
  Country: None (occurrence: None)
  Receive Date: 20111219
  Receipt Date: 20111206
  Transmission Date: 20120403
  Serious: Yes (Hospitalization, Other)
  Sender: FDA-Public Use
  Company Number: PHFR2011GB01646

PATIENT
  Sex: Male
  Weight: 80 kg

DRUGS (10)
  1. CLOZARIL [Suspect]
     Indication: SCHIZOPHRENIA
     Route: 048
     Dates: start: 20021125
  2. DEPAKOTE [Suspect]
     Indication: CONVULSION
     Dosage: 500 MG, BID
     Route: 048
     Dates: start: 20110201
  3. OMEPRAZOLE [Concomitant]
     Indication: GASTROINTESTINAL DISORDER
     Dosage: 40 MG,/DAY
     Route: 048
  4. VALPROATE SODIUM [Concomitant]
     Indication: AFFECTIVE DISORDER
     Dosage: 1000 MG/DAY
     Route: 048
     Dates: start: 20110201
  5. VITAMIN B COMPLEX CAP [Concomitant]
     Route: 048
  6. CLOZARIL [Suspect]
     Dosage: 400 MG/DAY
     Route: 048
     Dates: start: 20090101, end: 20110101
  7. CLOZARIL [Suspect]
     Dosage: 400 MG/DAY
     Route: 048
     Dates: start: 20110405
  8. CLOZARIL [Suspect]
     Dosage: 400 MG/DAY
     Route: 048
     Dates: start: 20110201, end: 20110322
  9. RISPERIDONE [Concomitant]
     Indication: SCHIZOPHRENIA
     Dosage: UNK DF, UNK
  10. THIAMINE HCL [Concomitant]
     Dosage: 200 MG/DAY
     Route: 048

REACTIONS (5)
  - WHITE BLOOD CELL COUNT INCREASED [None]
  - MYOCARDITIS [None]
  - BLOOD CREATINE PHOSPHOKINASE INCREASED [None]
  - NEUTROPHIL COUNT INCREASED [None]
  - CONVULSION [None]
